FAERS Safety Report 8057327-4 (Version None)
Quarter: 2012Q1

REPORT INFORMATION
  Report Type: 
  Country: None (occurrence: None)
  Receive Date: 20120119
  Receipt Date: 20120118
  Transmission Date: 20120608
  Serious: Yes (Hospitalization, Other)
  Sender: FDA-Public Use
  Company Number: SE-PFIZER INC-2011243119

PATIENT
  Age: 46 Year
  Sex: Female

DRUGS (4)
  1. VARENICLINE TARTRATE [Suspect]
     Indication: SMOKING CESSATION THERAPY
     Dosage: UNK
     Dates: start: 20110917, end: 20110921
  2. FORMOTEROL FUMARATE [Concomitant]
     Indication: ASTHMA
     Dosage: 4.5 UG, 2X/DAY
  3. BRICANYL [Concomitant]
     Indication: ASTHMA
     Dosage: 0.25 UG, AS NEEDED
  4. PULMICORT-100 [Concomitant]
     Indication: ASTHMA
     Dosage: 400 UG, 2X/DAY

REACTIONS (6)
  - RASH ERYTHEMATOUS [None]
  - CONTUSION [None]
  - HYPERSENSITIVITY [None]
  - DYSPNOEA [None]
  - HAEMORRHAGE [None]
  - PRURITUS [None]
